FAERS Safety Report 8924531 (Version 1)
Quarter: 2012Q4

REPORT INFORMATION
  Report Type: 
  Country: GR (occurrence: GR)
  Receive Date: 20121126
  Receipt Date: 20121126
  Transmission Date: 20130627
  Serious: Yes (Death, Life-Threatening)
  Sender: FDA-Public Use
  Company Number: GR-ASTRAZENECA-2012SE87862

PATIENT
  Age: 78 Year
  Sex: Male

DRUGS (2)
  1. QUETIAPINE [Suspect]
     Indication: DELIRIUM
     Route: 048
  2. QUETIAPINE [Suspect]
     Indication: DELIRIUM
     Route: 048

REACTIONS (4)
  - Pancreatitis acute [Fatal]
  - Renal failure acute [Fatal]
  - Acute respiratory distress syndrome [Fatal]
  - Haemodynamic instability [Unknown]
